FAERS Safety Report 14892453 (Version 4)
Quarter: 2018Q3

REPORT INFORMATION
  Report Type: Spontaneous
  Country: US (occurrence: US)
  Receive Date: 20180514
  Receipt Date: 20180809
  Transmission Date: 20181010
  Serious: Yes (Other)
  Sender: FDA-Public Use
  Company Number: US-009507513-1804USA011061

PATIENT
  Age: 59 Year
  Sex: Female

DRUGS (5)
  1. FLOVENT [Suspect]
     Active Substance: FLUTICASONE PROPIONATE
     Dosage: UNK
     Dates: start: 1997, end: 1997
  2. THEOPHYLLINE [Suspect]
     Active Substance: THEOPHYLLINE ANHYDROUS
     Dosage: UNK
     Dates: start: 1997, end: 1998
  3. PREDNISONE. [Suspect]
     Active Substance: PREDNISONE
     Dosage: UNK
     Dates: start: 1993
  4. PROVENTIL [Suspect]
     Active Substance: ALBUTEROL
     Indication: ASTHMA
     Dosage: UNK
     Route: 055
     Dates: start: 1997
  5. ALBUTEROL SULFATE. [Concomitant]
     Active Substance: ALBUTEROL SULFATE
     Dosage: UNK

REACTIONS (12)
  - Drug effect decreased [Not Recovered/Not Resolved]
  - Oral fungal infection [Unknown]
  - Psychomotor hyperactivity [Unknown]
  - Product quality issue [Not Recovered/Not Resolved]
  - Anxiety [Unknown]
  - Asthma [Unknown]
  - Pruritus [Unknown]
  - Vulvovaginal mycotic infection [Unknown]
  - Poor quality drug administered [Unknown]
  - Osteoarthritis [Not Recovered/Not Resolved]
  - Dyspnoea [Not Recovered/Not Resolved]
  - Cataract [Unknown]

NARRATIVE: CASE EVENT DATE: 20180424
